FAERS Safety Report 6236234-3 (Version None)
Quarter: 2009Q2

REPORT INFORMATION
  Report Type: 
  Country: None (occurrence: None)
  Receive Date: 20090616
  Receipt Date: 20090604
  Transmission Date: 20091009
  Serious: Yes (Hospitalization)
  Sender: FDA-Public Use
  Company Number: 2009AL002555

PATIENT
  Age: 51 Year
  Sex: Male

DRUGS (1)
  1. DIGOXIN [Suspect]
     Dosage: PO
     Route: 048
     Dates: start: 20040101

REACTIONS (4)
  - DYSPNOEA EXERTIONAL [None]
  - ECONOMIC PROBLEM [None]
  - INJURY [None]
  - UNEVALUABLE EVENT [None]
